FAERS Safety Report 25743081 (Version 2)
Quarter: 2025Q3

REPORT INFORMATION
  Report Type: Spontaneous
  Country: US (occurrence: US)
  Receive Date: 20250830
  Receipt Date: 20250910
  Transmission Date: 20251021
  Serious: No
  Sender: ACCORD
  Company Number: US-Accord-499707

PATIENT
  Age: 65 Year
  Sex: Male

DRUGS (1)
  1. UDENYCA [Suspect]
     Active Substance: PEGFILGRASTIM-CBQV
     Indication: Product used for unknown indication

REACTIONS (2)
  - Treatment delayed [Unknown]
  - Device issue [Unknown]

NARRATIVE: CASE EVENT DATE: 20250728
